FAERS Safety Report 7113978-2 (Version None)
Quarter: 2010Q4

REPORT INFORMATION
  Report Type: 
  Country: None (occurrence: None)
  Receive Date: 20101119
  Receipt Date: 20101117
  Transmission Date: 20110411
  Serious: Yes (Other)
  Sender: FDA-Public Use
  Company Number: A0893031A

PATIENT
  Sex: Female

DRUGS (1)
  1. VERAMYST [Suspect]
     Route: 065
     Dates: start: 20100915, end: 20101101

REACTIONS (1)
  - CHORIORETINOPATHY [None]
